FAERS Safety Report 11636938 (Version 1)
Quarter: 2015Q4

REPORT INFORMATION
  Report Type: Spontaneous
  Country: IT (occurrence: IT)
  Receive Date: 20151016
  Receipt Date: 20151016
  Transmission Date: 20160304
  Serious: Yes (Hospitalization)
  Sender: FDA-Public Use
  Company Number: IT-PFIZER INC-2015341791

PATIENT
  Age: 95 Year
  Sex: Female

DRUGS (5)
  1. AUGMENTIN [Suspect]
     Active Substance: AMOXICILLIN\CLAVULANATE POTASSIUM
     Indication: OROPHARYNGEAL PAIN
     Dosage: 2 DF, 1X/DAY
     Route: 048
     Dates: start: 20150907, end: 20150910
  2. MEDROL [Suspect]
     Active Substance: METHYLPREDNISOLONE
     Indication: OROPHARYNGEAL PAIN
     Dosage: 1 DF, 1X/DAY
     Route: 048
     Dates: start: 20150907, end: 20150910
  3. EUTIROX [Concomitant]
     Active Substance: LEVOTHYROXINE SODIUM
     Route: 048
  4. EFFEXOR [Concomitant]
     Active Substance: VENLAFAXINE HYDROCHLORIDE
     Dosage: 1 DF, UNK
     Route: 048
  5. PEPTAZOL /01159001/ [Concomitant]
     Route: 048

REACTIONS (4)
  - Melaena [Unknown]
  - Anaemia [Unknown]
  - Gastrointestinal haemorrhage [Unknown]
  - Haematochezia [Unknown]

NARRATIVE: CASE EVENT DATE: 20150910
